FAERS Safety Report 8017603-8 (Version None)
Quarter: 2012Q1

REPORT INFORMATION
  Report Type: 
  Country: None (occurrence: None)
  Receive Date: 20120103
  Receipt Date: 20111228
  Transmission Date: 20120608
  Serious: Yes (Hospitalization, Other)
  Sender: FDA-Public Use
  Company Number: IT-AMGEN-ITASP2011045718

PATIENT
  Age: 27 Year
  Sex: Male

DRUGS (2)
  1. HUMIRA [Concomitant]
     Indication: ANKYLOSING SPONDYLITIS
     Dosage: 40 MG, UNK
     Route: 058
     Dates: start: 20110520, end: 20110720
  2. ENBREL [Suspect]
     Indication: ANKYLOSING SPONDYLITIS
     Dosage: 50 MG, WEEKLY
     Route: 065
     Dates: start: 20100615, end: 20110318

REACTIONS (2)
  - LYMPHADENOPATHY [None]
  - LYMPHOMA [None]
